FAERS Safety Report 18348457 (Version 1)
Quarter: 2020Q4

REPORT INFORMATION
  Report Type: Spontaneous
  Country: CA (occurrence: CA)
  Receive Date: 20201006
  Receipt Date: 20201006
  Transmission Date: 20210114
  Serious: Yes (Hospitalization, Other)
  Sender: FDA-Public Use
  Company Number: CA-ICU MEDICAL, INC.-ICU2020CA00069

PATIENT
  Age: 67 Year
  Sex: Male

DRUGS (11)
  1. SODIUM LACTATE. [Suspect]
     Active Substance: SODIUM LACTATE
     Indication: RENAL FAILURE
     Dosage: UNK
     Route: 033
  2. MAGNESIUM CHLORIDE ANHYDROUS [Suspect]
     Active Substance: MAGNESIUM CHLORIDE ANHYDROUS
     Indication: RENAL FAILURE
     Route: 033
  3. MAGNESIUM CHLORIDE ANHYDROUS [Suspect]
     Active Substance: MAGNESIUM CHLORIDE ANHYDROUS
     Indication: PERITONEAL DIALYSIS
  4. 0.9% SODIUM CHLORIDE IRRIGATION [Suspect]
     Active Substance: SODIUM CHLORIDE
     Indication: PERITONEAL DIALYSIS
  5. SODIUM LACTATE. [Suspect]
     Active Substance: SODIUM LACTATE
     Indication: PERITONEAL DIALYSIS
  6. 0.9% SODIUM CHLORIDE IRRIGATION [Suspect]
     Active Substance: SODIUM CHLORIDE
     Indication: RENAL FAILURE
     Route: 033
  7. GLUCOSE [Suspect]
     Active Substance: DEXTROSE
     Indication: PERITONEAL DIALYSIS
  8. CALCIUM CARBONATE. [Suspect]
     Active Substance: CALCIUM CARBONATE
     Indication: PROPHYLAXIS
     Route: 048
  9. GLUCOSE [Suspect]
     Active Substance: DEXTROSE
     Indication: RENAL FAILURE
     Route: 033
  10. CALCIUM CHLORIDE. [Suspect]
     Active Substance: CALCIUM CHLORIDE
     Indication: PERITONEAL DIALYSIS
  11. CALCIUM CHLORIDE. [Suspect]
     Active Substance: CALCIUM CHLORIDE
     Indication: RENAL FAILURE
     Route: 033

REACTIONS (3)
  - Abnormal behaviour [Unknown]
  - Incoherent [Unknown]
  - Blood calcium increased [Unknown]
